FAERS Safety Report 12290418 (Version 1)
Quarter: 2016Q2

REPORT INFORMATION
  Report Type: Spontaneous
  Country: US (occurrence: None)
  Receive Date: 20160420
  Receipt Date: 20160420
  Transmission Date: 20160815
  Serious: Yes (Death, Hospitalization)
  Sender: FDA-Public Use
  Company Number: None

PATIENT
  Age: 71 Year
  Sex: Male
  Weight: 89.4 kg

DRUGS (7)
  1. OXYCODONE [Concomitant]
     Active Substance: OXYCODONE
  2. FENTANYL. [Concomitant]
     Active Substance: FENTANYL
  3. REGORAFINIB [Suspect]
     Active Substance: REGORAFENIB
     Indication: COLORECTAL CANCER METASTATIC
     Route: 048
     Dates: start: 20160330
  4. ALTEPLASE [Concomitant]
     Active Substance: ALTEPLASE
  5. MILK OF MAGNESIA [Concomitant]
     Active Substance: MAGNESIUM HYDROXIDE
  6. XARELTO [Concomitant]
     Active Substance: RIVAROXABAN
  7. FLUZONE [Concomitant]
     Active Substance: INFLUENZA A VIRUS A/CALIFORNIA/7/2009 X-179A (H1N1) ANTIGEN (FORMALDEHYDE INACTIVATED)\INFLUENZA A VIRUS A/VICTORIA/210/2009 X-187 (H3N2) ANTIGEN (FORMALDEHYDE INACTIVATED)\INFLUENZA B VIRUS B/BRISBANE/60/2008 ANTIGEN (FORMALDEHYDE INACTIVATED)

REACTIONS (8)
  - Back pain [None]
  - Asthenia [None]
  - Hypophagia [None]
  - Chest pain [None]
  - Sepsis [None]
  - Acute kidney injury [None]
  - Small intestinal obstruction [None]
  - Nausea [None]

NARRATIVE: CASE EVENT DATE: 20160406
